FAERS Safety Report 5257952-X (Version None)
Quarter: 2007Q1

REPORT INFORMATION
  Report Type: 
  Country: None (occurrence: None)
  Receive Date: 20070307
  Receipt Date: 20061108
  Transmission Date: 20070707
  Serious: No
  Sender: FDA-Public Use
  Company Number: US-GLAXOSMITHKLINE-A0626725A

PATIENT
  Age: 79 Year
  Sex: Female

DRUGS (5)
  1. REQUIP [Suspect]
     Indication: RESTLESS LEGS SYNDROME
     Dosage: 1MG PER DAY
     Route: 048
     Dates: start: 20061024, end: 20061107
  2. AVAPRO [Concomitant]
  3. ZOCOR [Concomitant]
  4. LANOXIN [Concomitant]
  5. CALCIUM CARBONATE [Concomitant]

REACTIONS (1)
  - DRUG INEFFECTIVE [None]
